FAERS Safety Report 17081586 (Version 2)
Quarter: 2020Q1

REPORT INFORMATION
  Report Type: Report from Study
  Country: None (occurrence: US)
  Receive Date: 20191127
  Receipt Date: 20200207
  Transmission Date: 20200409
  Serious: Yes (Death, Other)
  Sender: FDA-Public Use
  Company Number: US-ABBVIE-19K-163-3172185-00

PATIENT
  Sex: Male
  Weight: 59.93 kg

DRUGS (1)
  1. CREON [Suspect]
     Active Substance: PANCRELIPASE AMYLASE\PANCRELIPASE LIPASE\PANCRELIPASE PROTEASE
     Indication: PANCREATIC DISORDER
     Route: 048

REACTIONS (5)
  - Pancreatitis [Unknown]
  - Weight decreased [Unknown]
  - Physical disability [Unknown]
  - Renal failure [Fatal]
  - Neoplasm malignant [Unknown]
